FAERS Safety Report 8926438 (Version 1)
Quarter: 2012Q4

REPORT INFORMATION
  Report Type: 
  Country: US (occurrence: US)
  Receive Date: 20121127
  Receipt Date: 20121127
  Transmission Date: 20130627
  Serious: Yes (Hospitalization)
  Sender: FDA-Public Use
  Company Number: US-PFIZER INC-2012293065

PATIENT
  Age: 59 Year
  Sex: Female

DRUGS (2)
  1. REVATIO [Suspect]
     Dosage: UNK
  2. LETAIRIS [Suspect]
     Dosage: 5 mg, UNK
     Route: 048

REACTIONS (2)
  - Catheterisation cardiac [Unknown]
  - Cardiac pacemaker insertion [Recovered/Resolved]
